FAERS Safety Report 11230706 (Version 3)
Quarter: 2015Q3

REPORT INFORMATION
  Report Type: Spontaneous
  Country: US (occurrence: US)
  Receive Date: 20150701
  Receipt Date: 20150901
  Transmission Date: 20151125
  Serious: Yes (Death)
  Sender: FDA-Public Use
  Company Number: US-CELGENE-USA-2015066410

PATIENT
  Age: 59 Year
  Sex: Female

DRUGS (1)
  1. REVLIMID [Suspect]
     Active Substance: LENALIDOMIDE
     Indication: CHRONIC LEUKAEMIA
     Dosage: 10 MILLIGRAM
     Route: 048
     Dates: start: 20150331

REACTIONS (1)
  - Chronic leukaemia [Fatal]

NARRATIVE: CASE EVENT DATE: 20150501
